FAERS Safety Report 22981467 (Version 2)
Quarter: 2023Q4

REPORT INFORMATION
  Report Type: Report from Study
  Country: CA (occurrence: CA)
  Receive Date: 20230925
  Receipt Date: 20231025
  Transmission Date: 20240109
  Serious: Yes (Hospitalization)
  Sender: FDA-Public Use
  Company Number: CA-OTSUKA-2022_046491

PATIENT
  Age: 65 Year
  Sex: Male

DRUGS (2)
  1. TOLVAPTAN [Suspect]
     Active Substance: TOLVAPTAN
     Indication: Congenital cystic kidney disease
     Dosage: 60 MG
     Route: 048
     Dates: start: 20230413
  2. TOLVAPTAN [Suspect]
     Active Substance: TOLVAPTAN
     Dosage: UNK (RESUMED)
     Route: 065

REACTIONS (16)
  - Influenza [Unknown]
  - Pneumonia [Recovered/Resolved]
  - Fall [Unknown]
  - Hypertension [Recovered/Resolved]
  - Fall [Recovered/Resolved]
  - Wound [Unknown]
  - Wound infection [Unknown]
  - Osteoarthritis [Unknown]
  - Hyperhidrosis [Unknown]
  - Malaise [Unknown]
  - Arthralgia [Unknown]
  - Asthenia [Unknown]
  - Dry mouth [Unknown]
  - Polydipsia [Unknown]
  - Nocturia [Unknown]
  - Dehydration [Unknown]

NARRATIVE: CASE EVENT DATE: 20230413
